FAERS Safety Report 13415545 (Version 1)
Quarter: 2017Q2

REPORT INFORMATION
  Report Type: Spontaneous
  Country: GB (occurrence: GB)
  Receive Date: 20170406
  Receipt Date: 20170406
  Transmission Date: 20170830
  Serious: Yes (Other)
  Sender: FDA-Public Use
  Company Number: GB-TEVA-754734ACC

PATIENT
  Age: 68 Year
  Sex: Female
  Weight: 82.55 kg

DRUGS (6)
  1. LANSOPRAZOLE. [Suspect]
     Active Substance: LANSOPRAZOLE
     Indication: PROPHYLAXIS AGAINST GASTROINTESTINAL ULCER
     Route: 048
     Dates: start: 20170223, end: 20170227
  2. ALLOPURINOL. [Concomitant]
     Active Substance: ALLOPURINOL
  3. NAPROXEN. [Concomitant]
     Active Substance: NAPROXEN
  4. INDAPAMIDE. [Concomitant]
     Active Substance: INDAPAMIDE
  5. BOOTS PARACETAMOL [Concomitant]
  6. TRAMADOL HYDROCHLORIDE. [Concomitant]
     Active Substance: TRAMADOL HYDROCHLORIDE

REACTIONS (3)
  - Gastritis [Recovered/Resolved]
  - Diarrhoea [Recovered/Resolved]
  - Epigastric discomfort [Recovered/Resolved]

NARRATIVE: CASE EVENT DATE: 20170223
